FAERS Safety Report 8832309 (Version 1)
Quarter: 2012Q4

REPORT INFORMATION
  Report Type: 
  Country: US (occurrence: US)
  Receive Date: 20121009
  Receipt Date: 20121009
  Transmission Date: 20130627
  Serious: No
  Sender: FDA-Public Use
  Company Number: US-009507513-1209USA009269

PATIENT

DRUGS (1)
  1. JANUVIA [Suspect]
     Dosage: 100 mg, UNK
     Route: 048
     Dates: start: 20120913

REACTIONS (1)
  - Diarrhoea [Recovered/Resolved]
